FAERS Safety Report 11929589 (Version 2)
Quarter: 2016Q1

REPORT INFORMATION
  Report Type: Spontaneous
  Country: US (occurrence: US)
  Receive Date: 20160120
  Receipt Date: 20160224
  Transmission Date: 20160526
  Serious: Yes (Other)
  Sender: FDA-Public Use
  Company Number: US-BEH-2016057726

PATIENT
  Sex: Female
  Weight: 54 kg

DRUGS (14)
  1. SIMVASTATIN. [Concomitant]
     Active Substance: SIMVASTATIN
  2. IBANDRONATE [Concomitant]
     Active Substance: IBANDRONATE SODIUM
  3. DIPHENHYDRAMINE. [Concomitant]
     Active Substance: DIPHENHYDRAMINE
  4. ZYRTEC [Concomitant]
     Active Substance: CETIRIZINE HYDROCHLORIDE
  5. LEVOTHYROXINE. [Concomitant]
     Active Substance: LEVOTHYROXINE
  6. VITAMIN D [Concomitant]
     Active Substance: CHOLECALCIFEROL
  7. CALCIUM [Concomitant]
     Active Substance: CALCIUM
  8. EPIPEN [Concomitant]
     Active Substance: EPINEPHRINE
  9. HIZENTRA [Suspect]
     Active Substance: HUMAN IMMUNOGLOBULIN G
     Indication: IMMUNODEFICIENCY COMMON VARIABLE
     Dosage: 4 GM 20 ML VIAL
     Route: 058
     Dates: start: 20151028
  10. PREDNISONE. [Concomitant]
     Active Substance: PREDNISONE
  11. ALEVE [Concomitant]
     Active Substance: NAPROXEN SODIUM
  12. FLOVENT [Concomitant]
     Active Substance: FLUTICASONE PROPIONATE
  13. MULTIVITAMINS [Concomitant]
     Active Substance: VITAMINS
  14. ACETAMINOPHEN. [Concomitant]
     Active Substance: ACETAMINOPHEN

REACTIONS (3)
  - Cough [Unknown]
  - Malaise [Unknown]
  - Respiratory tract infection [Unknown]
